FAERS Safety Report 8043031-5 (Version None)
Quarter: 2012Q1

REPORT INFORMATION
  Report Type: 
  Country: None (occurrence: None)
  Receive Date: 20120112
  Receipt Date: 20120105
  Transmission Date: 20120608
  Serious: Yes (Hospitalization, Other)
  Sender: FDA-Public Use
  Company Number: PHHY2011US50854

PATIENT
  Sex: Female
  Weight: 136.5 kg

DRUGS (2)
  1. EXTAVIA [Suspect]
     Route: 058
     Dates: start: 20110606
  2. EXTAVIA [Suspect]
     Indication: MULTIPLE SCLEROSIS
     Dosage: 0.25 MG, QOD
     Route: 058
     Dates: start: 20100716

REACTIONS (17)
  - PALPITATIONS [None]
  - ASTHMA [None]
  - CHEST PAIN [None]
  - ABDOMINAL PAIN [None]
  - HYPERGLYCAEMIA [None]
  - DYSPNOEA [None]
  - SINUSITIS [None]
  - PAIN IN EXTREMITY [None]
  - ASTHENIA [None]
  - HEPATOMEGALY [None]
  - MULTIPLE SCLEROSIS [None]
  - MUSCULAR WEAKNESS [None]
  - HYPOKINESIA [None]
  - EYELID PTOSIS [None]
  - COGNITIVE DISORDER [None]
  - MOVEMENT DISORDER [None]
  - SINUS HEADACHE [None]
